FAERS Safety Report 17318501 (Version 2)
Quarter: 2020Q1

REPORT INFORMATION
  Report Type: Spontaneous
  Country: US (occurrence: US)
  Receive Date: 20200124
  Receipt Date: 20200131
  Transmission Date: 20200409
  Serious: Yes (Other)
  Sender: FDA-Public Use
  Company Number: US-ASTRAZENECA-2019SF84539

PATIENT
  Age: 26349 Day
  Sex: Female
  Weight: 82.6 kg

DRUGS (2)
  1. VITAMIN D LIQUID [Concomitant]
     Indication: VITAMIN D DEFICIENCY
     Route: 048
  2. BYDUREON BCISE [Suspect]
     Active Substance: EXENATIDE
     Indication: TYPE 2 DIABETES MELLITUS
     Route: 058
     Dates: start: 20191120

REACTIONS (5)
  - Injection site pain [Not Recovered/Not Resolved]
  - Injection site bruising [Not Recovered/Not Resolved]
  - Injection site swelling [Unknown]
  - Injection site warmth [Unknown]
  - Device issue [Unknown]

NARRATIVE: CASE EVENT DATE: 20191215
